FAERS Safety Report 22018047 (Version 1)
Quarter: 2023Q1

REPORT INFORMATION
  Report Type: Spontaneous
  Country: CN (occurrence: CN)
  Receive Date: 20230221
  Receipt Date: 20230221
  Transmission Date: 20230417
  Serious: Yes (Other)
  Sender: FDA-Public Use
  Company Number: CN-PFIZER INC-PV202300031492

PATIENT
  Age: 61 Year
  Sex: Female

DRUGS (3)
  1. SOLU-MEDROL [Suspect]
     Active Substance: METHYLPREDNISOLONE SODIUM SUCCINATE
     Indication: Neuromyelitis optica spectrum disorder
     Dosage: 1000 MG, 1X/DAY
     Route: 041
     Dates: start: 20230112, end: 20230125
  2. DEXAMETHASONE SODIUM PHOSPHATE [Concomitant]
     Active Substance: DEXAMETHASONE SODIUM PHOSPHATE
     Indication: Neuromyelitis optica spectrum disorder
     Dosage: 10 MG, 1X/DAY
     Route: 041
     Dates: start: 20230109, end: 20230111
  3. PAN MEI LU [Concomitant]
     Indication: Prophylaxis
     Dosage: 40 MG, 1X/DAY
     Route: 041
     Dates: start: 20230111, end: 20230119

REACTIONS (3)
  - Hepatic function abnormal [Recovering/Resolving]
  - Blood glucose increased [Recovering/Resolving]
  - Off label use [Unknown]

NARRATIVE: CASE EVENT DATE: 20230112
